FAERS Safety Report 4523128-4 (Version None)
Quarter: 2004Q4

REPORT INFORMATION
  Report Type: 
  Country: None (occurrence: None)
  Receive Date: 20041210
  Receipt Date: 20041130
  Transmission Date: 20050328
  Serious: Yes (Death)
  Sender: FDA-Public Use
  Company Number: NO-JNJFOC-20030705338

PATIENT
  Age: 42 Year
  Sex: Male

DRUGS (1)
  1. DURAGESIC [Suspect]
     Indication: DRUG USE FOR UNKNOWN INDICATION
     Route: 062

REACTIONS (6)
  - DEATH [None]
  - DRUG ABUSER [None]
  - DRUG TOXICITY [None]
  - LIVER DISORDER [None]
  - LYMPHADENOPATHY [None]
  - PULMONARY OEDEMA [None]
